FAERS Safety Report 19052775 (Version 2)
Quarter: 2021Q1

REPORT INFORMATION
  Report Type: Spontaneous
  Country: US (occurrence: US)
  Receive Date: 20210324
  Receipt Date: 20210330
  Transmission Date: 20210420
  Serious: No
  Sender: FDA-Public Use
  Company Number: US-BAYER-2021-107203

PATIENT
  Age: 58 Year
  Sex: Female

DRUGS (1)
  1. INTERFERON BETA ? 1B [Suspect]
     Active Substance: INTERFERON BETA-1B
     Indication: RELAPSING-REMITTING MULTIPLE SCLEROSIS
     Dosage: UNK
     Dates: end: 2014

REACTIONS (1)
  - Needle fatigue [None]
